FAERS Safety Report 19754008 (Version 1)
Quarter: 2021Q3

REPORT INFORMATION
  Report Type: Spontaneous
  Country: US (occurrence: US)
  Receive Date: 20210827
  Receipt Date: 20210827
  Transmission Date: 20211014
  Serious: No
  Sender: FDA-Public Use
  Company Number: None

PATIENT
  Age: 64 Year
  Sex: Male
  Weight: 85.5 kg

DRUGS (7)
  1. METFORMIN HCL XR 500 MG TABLET (IMPRINT G7) [Suspect]
     Active Substance: METFORMIN HYDROCHLORIDE
     Indication: PRODUCT USED FOR UNKNOWN INDICATION
     Dosage: ?          QUANTITY:3 TABLET(S);?
     Route: 048
     Dates: start: 20210719, end: 20210825
  2. NAPROXEN SODIUM. [Concomitant]
     Active Substance: NAPROXEN SODIUM
  3. CHOLECALCIFEROL [Concomitant]
     Active Substance: CHOLECALCIFEROL
  4. SACCHAROMYCES BOULARDII (PROBIOTIC) [Concomitant]
  5. CITALOPRAM [Concomitant]
     Active Substance: CITALOPRAM HYDROBROMIDE
  6. LOSARTAN?HYDROCHLOROTHIAZIDE [Concomitant]
     Active Substance: HYDROCHLOROTHIAZIDE\LOSARTAN
  7. ONE?A?DAY MEN^S VITAMIN [Concomitant]

REACTIONS (5)
  - Product odour abnormal [None]
  - Headache [None]
  - Oropharyngeal pain [None]
  - Blood glucose increased [None]
  - Arthralgia [None]

NARRATIVE: CASE EVENT DATE: 20210818
